FAERS Safety Report 11029518 (Version 2)
Quarter: 2015Q2

REPORT INFORMATION
  Report Type: Spontaneous
  Country: US (occurrence: None)
  Receive Date: 20150413
  Receipt Date: 20150424
  Transmission Date: 20150821
  Serious: Yes (Death)
  Sender: FDA-Public Use
  Company Number: IT-ALSI-201500070

PATIENT
  Age: 85 Year
  Sex: Male

DRUGS (2)
  1. OSSIGENO VITALAIRE, GAS MEDICINALE CRIOGENICO OXYGEN [Suspect]
     Active Substance: OXYGEN
     Indication: PRODUCT USED FOR UNKNOWN INDICATION
     Dosage: 2.5 | ONCE A MINUTE RESPIRATORY
     Dates: start: 20140725, end: 20141120
  2. OSSIGENO VITALAIRE, GAS MEDICINALE CRIOGENICO  OXYGEN [Suspect]
     Active Substance: OXYGEN
     Indication: PRODUCT USED FOR UNKNOWN INDICATION
     Dosage: 2 | ONCE A MINUTE; RESPIRATORY
     Route: 055
     Dates: start: 20140325, end: 20140724

REACTIONS (1)
  - Device failure [None]

NARRATIVE: CASE EVENT DATE: 20150402
